FAERS Safety Report 7826129-3 (Version None)
Quarter: 2011Q4

REPORT INFORMATION
  Report Type: 
  Country: None (occurrence: None)
  Receive Date: 20111019
  Receipt Date: 20111013
  Transmission Date: 20120403
  Serious: Yes (Death)
  Sender: FDA-Public Use
  Company Number: US-CELGENEUS-163-21880-11091309

PATIENT
  Sex: Male

DRUGS (30)
  1. ALLOPURINOL [Concomitant]
     Route: 065
  2. VITAMIN D [Concomitant]
     Dosage: 1000 UNIT
     Route: 048
  3. GUAIFENESIN [Concomitant]
     Route: 065
  4. SCOPOLAMINE [Concomitant]
     Route: 065
  5. REVLIMID [Suspect]
     Indication: MANTLE CELL LYMPHOMA
     Dosage: 5 MILLIGRAM
     Route: 048
     Dates: start: 20110830, end: 20110905
  6. ASCORBIC ACID [Concomitant]
     Dosage: 500 MILLIGRAM
     Route: 048
  7. LASIX [Concomitant]
     Dosage: 40 MILLIGRAM
     Route: 048
  8. NITROGLYCERIN [Concomitant]
  9. NEPHROCAPS [Concomitant]
     Route: 065
  10. HYDRALAZINE HCL [Concomitant]
     Route: 065
  11. ACYCLOVIR [Concomitant]
     Route: 065
  12. LORTAB [Concomitant]
     Indication: PAIN
     Dosage: 5-500MG, 0.5 TO 1 TABLET
     Route: 048
  13. NOVOLOG [Concomitant]
     Indication: DIABETES MELLITUS
     Dosage: 70-30, 100 UNIT/ML - 5 UNITS
     Route: 058
  14. NITROGLYCERIN [Concomitant]
     Indication: CHEST PAIN
     Dosage: .4 MILLIGRAM
     Route: 060
  15. RENVELA [Concomitant]
     Route: 065
  16. FUROSEMIDE [Concomitant]
     Route: 065
  17. LIPITOR [Concomitant]
     Dosage: 40 MILLIGRAM
     Route: 048
  18. XANAX [Concomitant]
     Dosage: .25 MILLIGRAM
     Route: 048
  19. ARANESP [Concomitant]
     Route: 065
  20. RENAGEL [Concomitant]
     Indication: RENAL OSTEODYSTROPHY
     Dosage: 2 TABLET
     Route: 048
  21. HYDROXYUREA [Concomitant]
     Route: 065
  22. METOPROLOL TARTRATE [Concomitant]
     Route: 065
  23. MOXIFLOXACIN [Concomitant]
     Indication: PNEUMONIA
     Route: 065
  24. OXYGEN [Concomitant]
     Route: 055
  25. ASCRIPTIN [Concomitant]
     Dosage: 325 MILLIGRAM
     Route: 048
  26. NEUPOGEN [Concomitant]
     Dosage: 480MCG/1.6ML
     Route: 058
  27. PRILOSEC [Concomitant]
     Dosage: 20 MILLIGRAM
     Route: 048
  28. APRESOLINE [Concomitant]
     Dosage: 2 TABLETS MORNING, 1 TABLET AT NIGHT
     Route: 048
  29. ZOFRAN [Concomitant]
     Indication: NAUSEA
     Dosage: 8 MILLIGRAM
     Route: 048
  30. RENAGEL [Concomitant]

REACTIONS (1)
  - MANTLE CELL LYMPHOMA [None]
